FAERS Safety Report 9643140 (Version 1)
Quarter: 2013Q4

REPORT INFORMATION
  Report Type: Spontaneous
  Country: US (occurrence: US)
  Receive Date: 20131024
  Receipt Date: 20131024
  Transmission Date: 20140711
  Serious: Yes (Other)
  Sender: FDA-Public Use
  Company Number: US-PFIZER INC-2013300908

PATIENT
  Age: 55 Year
  Sex: Male
  Weight: 100 kg

DRUGS (2)
  1. AMLODIPINE BESILATE [Suspect]
  2. LABETALOL [Suspect]
     Dosage: UNK

REACTIONS (4)
  - Overdose [Unknown]
  - Hypotension [Unknown]
  - Renal failure acute [Unknown]
  - Mental status changes [Unknown]
